FAERS Safety Report 9523434 (Version 1)
Quarter: 2013Q1

REPORT INFORMATION
  Report Type: Spontaneous
  Country: US (occurrence: None)
  Receive Date: 20130305
  Receipt Date: 20130305
  Transmission Date: 20140127
  Serious: Yes (Hospitalization)
  Sender: FDA-Public Use
  Company Number: 163-21880-12012654

PATIENT
  Age: 78 Year
  Sex: Female
  Weight: 78.02 kg

DRUGS (6)
  1. REVLIMID [Suspect]
     Indication: PLASMA CELL MYELOMA
     Dosage: 15 MG, 1 IN 1 D, PO
     Route: 048
     Dates: start: 20110804, end: 20120124
  2. DEXAMETHASONE ( DEXAMETHASONE) (UNKNOWN) [Concomitant]
  3. SYMBICORT ( SYMBICORT TURBUHALER ^DRACO^) ( UNKNOWN) [Concomitant]
  4. PHENERGAN ( PROMETHAZINE) ( UNKNOWN) [Concomitant]
  5. ZOFRAN ( ONDANSETRON HYDROCHLORIDE) (UNKNOWN) [Concomitant]
  6. CENTRUM SILVER ( CENTRUM SILVER) (UNKNOWN) [Concomitant]

REACTIONS (1)
  - Bronchitis [None]
